FAERS Safety Report 8272115-1 (Version None)
Quarter: 2012Q2

REPORT INFORMATION
  Report Type: 
  Country: None (occurrence: None)
  Receive Date: 20120410
  Receipt Date: 20120329
  Transmission Date: 20120825
  Serious: Yes (Disabling)
  Sender: FDA-Public Use
  Company Number: CA-BAYER-2012-031266

PATIENT
  Sex: Female

DRUGS (1)
  1. CIPROFLOXACIN HYDROCHLORIDE [Suspect]
     Indication: KIDNEY INFECTION
     Dosage: UNK
     Dates: start: 20100426, end: 20100502

REACTIONS (12)
  - GAIT DISTURBANCE [None]
  - MUSCULOSKELETAL PAIN [None]
  - ARTHRALGIA [None]
  - TENDON RUPTURE [None]
  - JOINT SWELLING [None]
  - TENDON INJURY [None]
  - PAIN IN EXTREMITY [None]
  - PAIN [None]
  - ACTIVITIES OF DAILY LIVING IMPAIRED [None]
  - SCAR [None]
  - MOBILITY DECREASED [None]
  - HYPOAESTHESIA [None]
